FAERS Safety Report 23257498 (Version 1)
Quarter: 2023Q4

REPORT INFORMATION
  Report Type: Spontaneous
  Country: IT (occurrence: IT)
  Receive Date: 20231204
  Receipt Date: 20231204
  Transmission Date: 20240109
  Serious: Yes (Other)
  Sender: FDA-Public Use
  Company Number: None

PATIENT
  Age: 69 Year
  Sex: Male

DRUGS (5)
  1. RAMIPRIL [Suspect]
     Active Substance: RAMIPRIL
     Indication: Hypertension
     Dosage: 10MG 8H START DATE OF THERAPY OFFICIALLY ATTRIBUTED
     Dates: start: 20230101, end: 20230306
  2. EDOXABAN [Concomitant]
     Active Substance: EDOXABAN
     Dosage: 60MG 1 TABLET 12H
  3. METFORMIN [Concomitant]
     Active Substance: METFORMIN HYDROCHLORIDE
     Dosage: 850MG 12H AND 20H
  4. AMIODARONE [Concomitant]
     Active Substance: AMIODARONE
     Dosage: 200MG 1 TABLET 8H
  5. SIMVASTATIN [Concomitant]
     Active Substance: SIMVASTATIN
     Dosage: 20MG 8H

REACTIONS (2)
  - Drug ineffective [Recovered/Resolved]
  - Hypertensive crisis [Recovered/Resolved]

NARRATIVE: CASE EVENT DATE: 20230306
